FAERS Safety Report 19100735 (Version 1)
Quarter: 2021Q2

REPORT INFORMATION
  Report Type: Spontaneous
  Country: US (occurrence: US)
  Receive Date: 20210407
  Receipt Date: 20210407
  Transmission Date: 20210717
  Serious: Yes (Other)
  Sender: FDA-Public Use
  Company Number: ALC2021US002405

PATIENT
  Sex: Male

DRUGS (3)
  1. ICAPS AREDS SOFTGEL 120 CT [Suspect]
     Active Substance: MINERALS\VITAMINS
     Dosage: UNK
     Route: 065
  2. ICAPS AREDS SOFTGEL 120 CT [Suspect]
     Active Substance: MINERALS\VITAMINS
     Indication: PRODUCT USED FOR UNKNOWN INDICATION
     Dosage: UNK
     Route: 065
  3. ICAPS AREDS SOFTGEL 120 CT [Suspect]
     Active Substance: MINERALS\VITAMINS
     Dosage: UNK
     Route: 065

REACTIONS (3)
  - Product size issue [Recovered/Resolved]
  - Choking [Recovered/Resolved]
  - Product use complaint [Recovered/Resolved]
